FAERS Safety Report 7540912-3 (Version None)
Quarter: 2011Q2

REPORT INFORMATION
  Report Type: 
  Country: None (occurrence: None)
  Receive Date: 20110610
  Receipt Date: 20110606
  Transmission Date: 20111010
  Serious: Yes (Life-Threatening, Hospitalization)
  Sender: FDA-Public Use
  Company Number: IN-ASTRAZENECA-2011SE34173

PATIENT
  Age: 55 Year
  Sex: Female

DRUGS (2)
  1. VERAPAMIL [Suspect]
     Route: 048
  2. METOPROLOL [Suspect]
     Route: 048

REACTIONS (10)
  - SUICIDE ATTEMPT [None]
  - OPTIC ISCHAEMIC NEUROPATHY [None]
  - ATRIOVENTRICULAR BLOCK SECOND DEGREE [None]
  - BRADYCARDIA [None]
  - MULTIPLE DRUG OVERDOSE [None]
  - HYPOTENSION [None]
  - LETHARGY [None]
  - DISORIENTATION [None]
  - HAEMODYNAMIC INSTABILITY [None]
  - WRONG DRUG ADMINISTERED [None]
